APPROVED DRUG PRODUCT: IMIPRAMINE HYDROCHLORIDE
Active Ingredient: IMIPRAMINE HYDROCHLORIDE
Strength: 50MG
Dosage Form/Route: TABLET;ORAL
Application: A088223 | Product #001
Applicant: WEST WARD PHARMACEUTICAL CORP
Approved: May 26, 1983 | RLD: No | RS: No | Type: DISCN